FAERS Safety Report 4684333-X (Version None)
Quarter: 2005Q2

REPORT INFORMATION
  Report Type: 
  Country: None (occurrence: None)
  Receive Date: 20050531
  Receipt Date: 20050223
  Transmission Date: 20051028
  Serious: Yes (Other)
  Sender: FDA-Public Use
  Company Number: USA041183647

PATIENT
  Age: 26 Year
  Sex: Male

DRUGS (4)
  1. ZYPREXA [Suspect]
     Dosage: 10 MG DAY
  2. WELLBUTRIN [Concomitant]
  3. LUVOX [Concomitant]
  4. STRATTERA [Concomitant]

REACTIONS (2)
  - CONVULSION [None]
  - EATING DISORDER [None]
